FAERS Safety Report 24108881 (Version 1)
Quarter: 2024Q3

REPORT INFORMATION
  Report Type: Spontaneous
  Country: US (occurrence: US)
  Receive Date: 20240718
  Receipt Date: 20240718
  Transmission Date: 20241017
  Serious: Yes (Hospitalization)
  Sender: MYLAN
  Company Number: US-MYLANLABS-2024M1065293

PATIENT
  Age: 67 Year
  Sex: Male

DRUGS (12)
  1. DAPSONE [Suspect]
     Active Substance: DAPSONE
     Indication: Antifungal prophylaxis
     Dosage: UNK
     Route: 065
  2. SULFAMETHOXAZOLE\TRIMETHOPRIM [Suspect]
     Active Substance: SULFAMETHOXAZOLE\TRIMETHOPRIM
     Indication: Antifungal prophylaxis
     Dosage: UNK
     Route: 065
  3. RITUXIMAB [Concomitant]
     Active Substance: RITUXIMAB
     Indication: Mantle cell lymphoma
     Dosage: UNK, AS PART OF R-DHAP CHEMOTHERAPY
     Route: 065
  4. DEXAMETHASONE [Concomitant]
     Active Substance: DEXAMETHASONE
     Indication: Mantle cell lymphoma
     Dosage: UNK; AS PART OF R-DHAP CHEMOTHERAPY
     Route: 065
  5. CYTARABINE [Concomitant]
     Active Substance: CYTARABINE
     Indication: Mantle cell lymphoma
     Dosage: UNK; HIGH-DOSE; AS PART OF R-DHAP CHEMOTHERAPY
     Route: 065
  6. CISPLATIN [Concomitant]
     Active Substance: CISPLATIN
     Indication: Mantle cell lymphoma
     Dosage: UNK; AS PART OF R-DHAP CHEMOTHERAPY
     Route: 065
  7. APIXABAN [Concomitant]
     Active Substance: APIXABAN
     Indication: Deep vein thrombosis
     Dosage: UNK
     Route: 065
  8. ATOVAQUONE [Concomitant]
     Active Substance: ATOVAQUONE
     Indication: Antifungal prophylaxis
     Dosage: UNK
     Route: 065
  9. LISINOPRIL [Concomitant]
     Active Substance: LISINOPRIL
     Indication: Hypertension
     Dosage: UNK
     Route: 065
  10. OMEPRAZOLE [Concomitant]
     Active Substance: OMEPRAZOLE
     Indication: Product used for unknown indication
     Dosage: UNK
     Route: 065
  11. ACYCLOVIR [Concomitant]
     Active Substance: ACYCLOVIR
     Indication: Prophylaxis
     Dosage: UNK
     Route: 065
  12. FILGRASTIM [Concomitant]
     Active Substance: FILGRASTIM
     Indication: Product used for unknown indication
     Dosage: UNK
     Route: 065

REACTIONS (4)
  - Methaemoglobinaemia [Recovering/Resolving]
  - Anaemia [Recovering/Resolving]
  - Rash [Unknown]
  - Off label use [Unknown]
